FAERS Safety Report 9162554 (Version 1)
Quarter: 2013Q1

REPORT INFORMATION
  Report Type: Spontaneous
  Country: US (occurrence: None)
  Receive Date: 20130213
  Receipt Date: 20130213
  Transmission Date: 20140127
  Serious: Yes (Hospitalization)
  Sender: FDA-Public Use
  Company Number: 2012PROUSA02425

PATIENT
  Age: 80 Year
  Sex: Male
  Weight: 88.9 kg

DRUGS (11)
  1. PROVENGE [Suspect]
     Indication: PROSTATE CANCER METASTATIC
     Route: 042
     Dates: start: 20121119, end: 20121119
  2. PHENOBARBITAL (PHENOBARBITAL) [Concomitant]
  3. LAMICTAL (LAMICTAL) [Concomitant]
  4. IRON SULFATE (IRON SULFTATE) [Concomitant]
  5. DULCOLAX (BISACODY) [Concomitant]
  6. CALCIUM + VITAMIN D (CALCIUM LACTATE, CALCIUM PHOSPHATE, COLECALCIFEROL) [Concomitant]
  7. NORVASC (AMIODIPINE BESILATE) [Concomitant]
  8. SYNTHROID (LEVOTHYROXINE SODIUM) [Concomitant]
  9. CARDURA (DOXAZOSIN MESILATE) [Concomitant]
  10. CLONIDINE (CLONIDINE HYDROCHLORIDE) [Concomitant]
  11. MONOPRIL (FOSINOPRIL SODIUM) [Concomitant]

REACTIONS (22)
  - Device related sepsis [None]
  - Delirium [None]
  - Encephalopathy [None]
  - Asthenia [None]
  - Malnutrition [None]
  - Renal failure acute [None]
  - Dehydration [None]
  - Ecchymosis [None]
  - Epigastric discomfort [None]
  - Abdominal mass [None]
  - Ventricular extrasystoles [None]
  - Upper respiratory tract infection [None]
  - Urinary tract infection [None]
  - Hypertension [None]
  - Device related infection [None]
  - Bronchitis [None]
  - Nausea [None]
  - Wheelchair user [None]
  - Staphylococcal bacteraemia [None]
  - Memory impairment [None]
  - Catheter site erythema [None]
  - Catheter site swelling [None]
